FAERS Safety Report 10467677 (Version 2)
Quarter: 2014Q3

REPORT INFORMATION
  Report Type: Spontaneous
  Country: US (occurrence: US)
  Receive Date: 20140922
  Receipt Date: 20140924
  Transmission Date: 20150326
  Serious: No
  Sender: FDA-Public Use
  Company Number: US-TEVA-505964USA

PATIENT
  Age: 41 Year
  Sex: Female
  Weight: 77.63 kg

DRUGS (2)
  1. ADVAIR DISCUS INHALER [Concomitant]
     Indication: ASTHMA
     Dosage: DAILY
     Route: 055
  2. PARAGARD T380A [Suspect]
     Active Substance: COPPER
     Indication: CONTRACEPTION
     Route: 015
     Dates: start: 20131209, end: 20140707

REACTIONS (2)
  - Exposure during breast feeding [Unknown]
  - Device expulsion [Recovered/Resolved]

NARRATIVE: CASE EVENT DATE: 20140707
